FAERS Safety Report 21957636 (Version 3)
Quarter: 2023Q1

REPORT INFORMATION
  Report Type: Report from Study
  Country: DE (occurrence: DE)
  Receive Date: 20230206
  Receipt Date: 20230329
  Transmission Date: 20230418
  Serious: Yes (Other)
  Sender: FDA-Public Use
  Company Number: DE-ROCHE-2464164

PATIENT
  Age: 40 Year
  Sex: Female

DRUGS (13)
  1. COMIRNATY [Suspect]
     Active Substance: TOZINAMERAN
     Indication: COVID-19 immunisation
     Dosage: DOSE NUMBER UNKNOWN, SINGLE
  2. AZITHROMYCIN [Suspect]
     Active Substance: AZITHROMYCIN
     Indication: Pyrexia
     Dosage: UNK
     Dates: start: 20200120
  3. AZITHROMYCIN [Suspect]
     Active Substance: AZITHROMYCIN
     Indication: Influenza
  4. DESOGESTREL [Suspect]
     Active Substance: DESOGESTREL
     Indication: Contraception
     Dosage: UNK
     Dates: start: 20191115
  5. OCREVUS [Suspect]
     Active Substance: OCRELIZUMAB
     Indication: Relapsing-remitting multiple sclerosis
     Dosage: 300 MG
     Route: 042
     Dates: start: 20190822
  6. OCREVUS [Suspect]
     Active Substance: OCRELIZUMAB
     Dosage: 300 MG
     Route: 042
     Dates: start: 20190905
  7. OCREVUS [Suspect]
     Active Substance: OCRELIZUMAB
     Dosage: 600 MG
     Route: 042
     Dates: start: 20210202
  8. OCREVUS [Suspect]
     Active Substance: OCRELIZUMAB
     Dosage: 600 MG, EVERY 6 MONTHS
     Route: 042
     Dates: start: 20200625
  9. OCREVUS [Suspect]
     Active Substance: OCRELIZUMAB
     Dosage: 600 MG, CYCLIC (EVERY 173 DAYS)
     Route: 042
     Dates: start: 20190822
  10. CORTISONE [Suspect]
     Active Substance: CORTISONE
     Indication: Premedication
     Dosage: UNK
  11. NITROFURANTOIN [Concomitant]
     Active Substance: NITROFURANTOIN
     Dosage: UNK
  12. CHOLECALCIFEROL [Concomitant]
     Active Substance: CHOLECALCIFEROL
     Dosage: UNK
  13. MICTONORM UNO [Concomitant]
     Dosage: 30 MG

REACTIONS (15)
  - Sinusitis [Recovered/Resolved]
  - Anosmia [Recovered/Resolved]
  - Ageusia [Recovered/Resolved]
  - Cough [Recovered/Resolved]
  - Bronchitis [Recovered/Resolved]
  - Platelet count increased [Not Recovered/Not Resolved]
  - Bacterial infection [Unknown]
  - Asthenia [Not Recovered/Not Resolved]
  - Fatigue [Recovered/Resolved]
  - Lactose intolerance [Not Recovered/Not Resolved]
  - Pain in extremity [Recovered/Resolved]
  - Back pain [Recovered/Resolved]
  - Maternal exposure timing unspecified [Unknown]
  - Body temperature increased [Recovered/Resolved]
  - Cystitis noninfective [Recovered/Resolved]

NARRATIVE: CASE EVENT DATE: 20200101
